FAERS Safety Report 8041143-3 (Version None)
Quarter: 2012Q1

REPORT INFORMATION
  Report Type: 
  Country: None (occurrence: None)
  Receive Date: 20120112
  Receipt Date: 20120104
  Transmission Date: 20120608
  Serious: Yes (Other)
  Sender: FDA-Public Use
  Company Number: US-JNJFOC-20120101162

PATIENT
  Sex: Female
  Weight: 54.43 kg

DRUGS (5)
  1. DURAGESIC-100 [Suspect]
     Dosage: 50 UG/ HR+100 UG/ HR
     Route: 062
     Dates: start: 20110101
  2. DURAGESIC-100 [Suspect]
     Dosage: 50 UG/ HR+100 UG/ HR
     Route: 062
     Dates: start: 20110101
  3. DURAGESIC-100 [Suspect]
     Route: 062
  4. DURAGESIC-100 [Suspect]
     Indication: PAIN
     Dosage: IN 2000 OR 2001
     Route: 062
  5. DURAGESIC-100 [Suspect]
     Route: 062

REACTIONS (9)
  - INCORRECT DRUG ADMINISTRATION RATE [None]
  - WITHDRAWAL SYNDROME [None]
  - FATIGUE [None]
  - TOOTH LOSS [None]
  - PRODUCT QUALITY ISSUE [None]
  - HYPERSOMNIA [None]
  - DEVICE LEAKAGE [None]
  - DRUG INEFFECTIVE [None]
  - SKIN BURNING SENSATION [None]
